FAERS Safety Report 17238552 (Version 1)
Quarter: 2020Q1

REPORT INFORMATION
  Report Type: Spontaneous
  Country: US (occurrence: US)
  Receive Date: 20200104
  Receipt Date: 20200104
  Transmission Date: 20200409
  Serious: Yes (Other)
  Sender: FDA-Public Use
  Company Number: None

PATIENT
  Age: 39 Year
  Sex: Female
  Weight: 82.44 kg

DRUGS (12)
  1. BUTALBITAL [Concomitant]
     Active Substance: BUTALBITAL
  2. TUMERIC SUPPLEMENT [Concomitant]
  3. VITAMIN B12 [Concomitant]
     Active Substance: CYANOCOBALAMIN
  4. FISH OIL [Concomitant]
     Active Substance: FISH OIL
  5. ONDANSETRON [Concomitant]
     Active Substance: ONDANSETRON
  6. LORAZEPAM. [Concomitant]
     Active Substance: LORAZEPAM
  7. VITAMIN D3 [Concomitant]
     Active Substance: CHOLECALCIFEROL
  8. GINGER SUPPLEMENT [Concomitant]
  9. TIZANIDINE. [Concomitant]
     Active Substance: TIZANIDINE
  10. MAGNESIUM [Concomitant]
     Active Substance: MAGNESIUM
  11. BOTOX [Suspect]
     Active Substance: ONABOTULINUMTOXINA
     Indication: MIGRAINE
     Route: 058
     Dates: start: 20191206, end: 20200104
  12. METHYLPHENIDATE. [Concomitant]
     Active Substance: METHYLPHENIDATE

REACTIONS (17)
  - Nausea [None]
  - Diplopia [None]
  - Drug monitoring procedure not performed [None]
  - Dyskinesia [None]
  - Hypoaesthesia [None]
  - Migraine [None]
  - Tinnitus [None]
  - Back pain [None]
  - Anxiety [None]
  - Vomiting [None]
  - Fatigue [None]
  - Headache [None]
  - Neck pain [None]
  - Dizziness [None]
  - Abdominal discomfort [None]
  - Diarrhoea [None]
  - Vision blurred [None]

NARRATIVE: CASE EVENT DATE: 20191206
